FAERS Safety Report 7587007-0 (Version None)
Quarter: 2011Q3

REPORT INFORMATION
  Report Type: 
  Country: None (occurrence: None)
  Receive Date: 20110701
  Receipt Date: 20110616
  Transmission Date: 20111222
  Serious: Yes (Hospitalization, Other)
  Sender: FDA-Public Use
  Company Number: PHHY2010DE70651

PATIENT
  Sex: Male

DRUGS (3)
  1. CHEMOTHERAPEUTICS NOS [Concomitant]
  2. IMMUNOSUPPRESSANTS [Concomitant]
  3. GLEEVEC [Suspect]
     Indication: CHRONIC MYELOID LEUKAEMIA
     Dosage: UNK
     Dates: start: 20001101, end: 20010201

REACTIONS (12)
  - INTERSTITIAL LUNG DISEASE [None]
  - ANAEMIA [None]
  - FUNGAL INFECTION [None]
  - LUNG INFECTION [None]
  - BACTERIAL INFECTION [None]
  - CYTOMEGALOVIRUS INFECTION [None]
  - INFERTILITY [None]
  - RENAL FAILURE [None]
  - PULMONARY FIBROSIS [None]
  - PNEUMOCYSTIS JIROVECI PNEUMONIA [None]
  - ACUTE GRAFT VERSUS HOST DISEASE IN INTESTINE [None]
  - COMA [None]
